FAERS Safety Report 17460503 (Version 1)
Quarter: 2020Q1

REPORT INFORMATION
  Report Type: Spontaneous
  Country: US (occurrence: US)
  Receive Date: 20200226
  Receipt Date: 20200226
  Transmission Date: 20200409
  Serious: No
  Sender: FDA-Public Use
  Company Number: US-PFIZER INC-2020061454

PATIENT
  Age: 13 Year
  Sex: Female
  Weight: 56 kg

DRUGS (2)
  1. CLINDAMYCIN HCL [Suspect]
     Active Substance: CLINDAMYCIN HYDROCHLORIDE
     Indication: PHARYNGITIS STREPTOCOCCAL
     Dosage: 300 MG, 2X/DAY
     Route: 048
  2. CLINDAMYCIN HCL [Suspect]
     Active Substance: CLINDAMYCIN HYDROCHLORIDE
     Dosage: 20 ML, 2X/DAY
     Route: 048
     Dates: start: 20200206, end: 20200215

REACTIONS (5)
  - Off label use [Unknown]
  - Product use issue [Unknown]
  - Blood glucose increased [Unknown]
  - Wrong technique in product usage process [Unknown]
  - Product taste abnormal [Unknown]
